FAERS Safety Report 10791799 (Version 14)
Quarter: 2015Q4

REPORT INFORMATION
  Report Type: Report from Study
  Country: CN (occurrence: CN)
  Receive Date: 20150213
  Receipt Date: 20151013
  Transmission Date: 20160304
  Serious: Yes (Hospitalization)
  Sender: FDA-Public Use
  Company Number: CN-ROCHE-1533273

PATIENT
  Age: 51 Year
  Sex: Male
  Weight: 57 kg

DRUGS (47)
  1. DOLASETRON MESYLATE [Concomitant]
     Active Substance: DOLASETRON MESYLATE
     Indication: VOMITING
  2. DOMPERIDONE [Concomitant]
     Active Substance: DOMPERIDONE
     Indication: VOMITING
  3. BERBAMINE HYDROCHLORIDE [Concomitant]
     Indication: LEUKOPENIA
     Route: 065
     Dates: start: 20141126
  4. ONDANSETRON HYDROCHLORIDE. [Concomitant]
     Active Substance: ONDANSETRON HYDROCHLORIDE
     Indication: VOMITING
  5. INSULIN [Concomitant]
     Active Substance: INSULIN NOS
     Route: 065
     Dates: start: 20141024
  6. LANSOPRAZOLE. [Concomitant]
     Active Substance: LANSOPRAZOLE
     Route: 065
     Dates: start: 20150217, end: 20150217
  7. CISPLATIN. [Suspect]
     Active Substance: CISPLATIN
     Indication: GASTRIC CANCER
     Dosage: MOST RECENT DOSE PRIOR TO SAE: 90 MG ON 26/JAN/2015
     Route: 042
     Dates: start: 20141015
  8. METOCLOPRAMIDE DIHYDROCHLORIDE [Concomitant]
     Indication: VOMITING
     Route: 065
     Dates: start: 20141018
  9. DEXAMETHASONE SODIUM PHOSPHATE. [Concomitant]
     Active Substance: DEXAMETHASONE SODIUM PHOSPHATE
     Indication: NAUSEA
     Route: 041
     Dates: start: 20141103, end: 20141106
  10. ALUMINIUM PHOSPHATE [Concomitant]
     Active Substance: ALUMINUM PHOSPHATE
     Route: 065
     Dates: start: 20141026
  11. ONDANSETRON HYDROCHLORIDE. [Concomitant]
     Active Substance: ONDANSETRON HYDROCHLORIDE
     Indication: NAUSEA
     Route: 065
     Dates: start: 20141218
  12. DEXTROSE. [Concomitant]
     Active Substance: DEXTROSE
     Route: 065
     Dates: start: 20140927
  13. METOCLOPRAMIDE DIHYDROCHLORIDE [Concomitant]
     Indication: NAUSEA
  14. SODIUM CHLORIDE. [Concomitant]
     Active Substance: SODIUM CHLORIDE
     Route: 065
     Dates: start: 20141218
  15. SODIUM BICARBONATE. [Concomitant]
     Active Substance: SODIUM BICARBONATE
     Route: 048
     Dates: start: 20150131, end: 20150203
  16. THYMOPENTIN [Concomitant]
     Active Substance: THYMOPENTIN
     Route: 065
     Dates: start: 20150203, end: 20150206
  17. TORSEMIDE. [Concomitant]
     Active Substance: TORSEMIDE
     Route: 065
     Dates: start: 20150217, end: 20150217
  18. SODIUM CHLORIDE. [Concomitant]
     Active Substance: SODIUM CHLORIDE
     Dosage: CONCENTRATED
     Route: 065
     Dates: start: 20150131, end: 20150202
  19. OMEPRAZOLE SODIUM [Concomitant]
     Active Substance: OMEPRAZOLE SODIUM
     Route: 065
     Dates: start: 20141025
  20. OMEPRAZOLE MAGNESIUM. [Concomitant]
     Active Substance: OMEPRAZOLE MAGNESIUM
     Route: 065
     Dates: start: 20141106
  21. GLUCOSE INJECTION [Concomitant]
     Route: 065
     Dates: start: 20141218
  22. GLUCOSE/SODIUM CHLORIDE [Concomitant]
     Active Substance: DEXTROSE
     Dosage: FLUID INFUSION
     Route: 065
     Dates: start: 20141218
  23. ETHYLENEDIAMINE DIACETURATE [Concomitant]
     Indication: POST PROCEDURAL HAEMORRHAGE
     Route: 065
     Dates: start: 20150205, end: 20150206
  24. CAPECITABINE. [Suspect]
     Active Substance: CAPECITABINE
     Indication: GASTRIC CANCER
     Dosage: MOST RECENT DOSE: 28/JAN/2015 TOTAL DAILY DOSE 2000MG
     Route: 048
     Dates: start: 20141015
  25. LENTINAN [Concomitant]
     Active Substance: LENTINAN
     Route: 065
     Dates: start: 20150206, end: 20150206
  26. ALPROSTADIL. [Concomitant]
     Active Substance: ALPROSTADIL
     Route: 065
     Dates: start: 20150128
  27. FAT EMULSION NOS [Concomitant]
     Active Substance: EGG PHOSPHOLIPIDS\SAFFLOWER OIL\SOYBEAN OIL
     Route: 065
     Dates: start: 20140925
  28. DOLASETRON MESYLATE [Concomitant]
     Active Substance: DOLASETRON MESYLATE
     Indication: NAUSEA
     Route: 065
     Dates: start: 20141015
  29. SODIUM CHLORIDE. [Concomitant]
     Active Substance: SODIUM CHLORIDE
     Indication: HYPONATRAEMIA
     Route: 065
     Dates: start: 20141024
  30. FUROSEMIDE. [Concomitant]
     Active Substance: FUROSEMIDE
     Route: 065
     Dates: start: 20150129, end: 20150130
  31. TRASTUZUMAB [Suspect]
     Active Substance: TRASTUZUMAB
     Dosage: MAINTENANCE DOSE ; MOST RECENT DOSE PRIOR TO SAE: 520 MG ON 26/JAN/2015
     Route: 042
  32. GLYCYRRHIZIN [Concomitant]
     Active Substance: GLYCYRRHIZIN
     Route: 065
     Dates: start: 20141015
  33. GLYCYRRHIZIN [Concomitant]
     Active Substance: GLYCYRRHIZIN
     Route: 065
     Dates: start: 20141218
  34. DEXAMETHASONE SODIUM PHOSPHATE. [Concomitant]
     Active Substance: DEXAMETHASONE SODIUM PHOSPHATE
     Indication: ADJUVANT THERAPY
     Route: 041
     Dates: start: 20141019, end: 20141020
  35. DOMPERIDONE [Concomitant]
     Active Substance: DOMPERIDONE
     Indication: NAUSEA
     Route: 065
     Dates: start: 20141022
  36. LACTULOSE. [Concomitant]
     Active Substance: LACTULOSE
     Route: 048
     Dates: start: 20141027
  37. POTASSIUM CHLORIDE. [Concomitant]
     Active Substance: POTASSIUM CHLORIDE
     Route: 065
     Dates: start: 20141106
  38. LEUCOGEN (FILGRASTIM) [Concomitant]
     Indication: LEUKOPENIA
     Route: 065
     Dates: start: 20141126
  39. NIAODUQING KELI [Concomitant]
     Route: 065
     Dates: start: 20150126
  40. VITAMIN B6 [Concomitant]
     Active Substance: PYRIDOXINE HYDROCHLORIDE
     Route: 065
     Dates: start: 20110925
  41. METOCLOPRAMIDE. [Concomitant]
     Active Substance: METOCLOPRAMIDE
     Indication: VOMITING
     Route: 065
     Dates: start: 20141107
  42. GLUTATHIONE [Concomitant]
     Active Substance: GLUTATHIONE
     Route: 065
     Dates: start: 20150106, end: 20150108
  43. RECOMBINANT HUMAN INTERLEUKIN-2 [Concomitant]
     Active Substance: ALDESLEUKIN
     Indication: ADJUVANT THERAPY
     Route: 065
     Dates: start: 20150203, end: 20150206
  44. TRASTUZUMAB [Suspect]
     Active Substance: TRASTUZUMAB
     Indication: GASTRIC CANCER
     Dosage: LOADING DOSE
     Route: 042
     Dates: start: 20141015, end: 20141015
  45. POTASSIUM CHLORIDE. [Concomitant]
     Active Substance: POTASSIUM CHLORIDE
     Route: 065
     Dates: start: 20140925
  46. GLUCOSE INJECTION [Concomitant]
     Route: 065
     Dates: start: 20141219
  47. ETHYLENEDIAMINE DIACETURATE [Concomitant]
     Route: 065
     Dates: start: 20150217, end: 20150217

REACTIONS (1)
  - Ureteric obstruction [Recovered/Resolved]

NARRATIVE: CASE EVENT DATE: 20150126
